FAERS Safety Report 24935851 (Version 1)
Quarter: 2025Q1

REPORT INFORMATION
  Report Type: Report from Study
  Country: US (occurrence: US)
  Receive Date: 20250206
  Receipt Date: 20250206
  Transmission Date: 20250409
  Serious: Yes (Other)
  Sender: EXELIXIS
  Company Number: US-EXELIXIS-EXL-2024-000079

PATIENT
  Age: 18 Year
  Sex: Female

DRUGS (1)
  1. CABOMETYX [Suspect]
     Active Substance: CABOZANTINIB S-MALATE
     Indication: Ewing^s sarcoma recurrent
     Dosage: 60 MG, QD
     Route: 048
     Dates: start: 20240722

REACTIONS (5)
  - Hypothyroidism [Recovered/Resolved]
  - Pancreatic enzymes increased [Unknown]
  - Hepatic enzyme increased [Unknown]
  - Product prescribing issue [Unknown]
  - Off label use [Unknown]

NARRATIVE: CASE EVENT DATE: 20240820
